FAERS Safety Report 11691400 (Version 1)
Quarter: 2015Q4

REPORT INFORMATION
  Report Type: Spontaneous
  Country: US (occurrence: US)
  Receive Date: 20151102
  Receipt Date: 20151102
  Transmission Date: 20160304
  Serious: No
  Sender: FDA-Public Use
  Company Number: US-BAYER-2015-454098

PATIENT
  Age: 77 Year
  Sex: Female
  Weight: 77.98 kg

DRUGS (1)
  1. LOTRIMIN ULTRA ANTIFUNGAL [Suspect]
     Active Substance: BUTENAFINE HYDROCHLORIDE
     Indication: RASH
     Dosage: 1 DF, ONCE
     Route: 061
     Dates: start: 2015, end: 2015

REACTIONS (2)
  - Product use issue [Recovered/Resolved]
  - Therapeutic response unexpected [None]

NARRATIVE: CASE EVENT DATE: 2015
